FAERS Safety Report 19131968 (Version 2)
Quarter: 2021Q2

REPORT INFORMATION
  Report Type: Spontaneous
  Country: GB (occurrence: GB)
  Receive Date: 20210413
  Receipt Date: 20210520
  Transmission Date: 20210717
  Serious: Yes (Other)
  Sender: FDA-Public Use
  Company Number: GB-GLAXOSMITHKLINE-GBCH2021018615

PATIENT
  Age: 73 Year
  Sex: Female

DRUGS (3)
  1. IBUPROFEN. [Suspect]
     Active Substance: IBUPROFEN
     Indication: OSTEOARTHRITIS
     Dosage: 200 MG, BID (2 X 200MG TWICE A DAY)
     Route: 048
     Dates: start: 202001, end: 20210320
  2. OMEPRAZOLE. [Concomitant]
     Active Substance: OMEPRAZOLE
     Indication: ILL-DEFINED DISORDER
     Dosage: UNK
     Route: 065
  3. IBUPROFEN. [Suspect]
     Active Substance: IBUPROFEN
     Dosage: 800 MG, QD (400 MILLIGRAM, TWO TIMES A DAY)
     Route: 048
     Dates: start: 202001, end: 20210320

REACTIONS (3)
  - Deafness [Not Recovered/Not Resolved]
  - Off label use [Unknown]
  - Ear discomfort [Unknown]

NARRATIVE: CASE EVENT DATE: 2020
